FAERS Safety Report 7407868-5 (Version None)
Quarter: 2011Q2

REPORT INFORMATION
  Report Type: 
  Country: None (occurrence: None)
  Receive Date: 20110406
  Receipt Date: 20110406
  Transmission Date: 20111010
  Serious: Yes (Other)
  Sender: FDA-Public Use
  Company Number: None

PATIENT
  Sex: Male
  Weight: 78.4723 kg

DRUGS (3)
  1. LIPITOR [Suspect]
     Indication: CORONARY ARTERY BYPASS
     Dosage: LIPITOR 20MG QD ORAL
     Route: 048
     Dates: start: 20050101
  2. LIPITOR [Suspect]
     Indication: CORONARY ARTERY DISEASE
     Dosage: LIPITOR 20MG QD ORAL
     Route: 048
     Dates: start: 20050101
  3. SIMVASTATIN [Suspect]
     Indication: HYPERLIPIDAEMIA
     Dosage: SIMVASTATIN 20MG QD ORAL
     Route: 048
     Dates: start: 20100412

REACTIONS (1)
  - MYALGIA [None]
